FAERS Safety Report 17023107 (Version 1)
Quarter: 2019Q4

REPORT INFORMATION
  Report Type: Spontaneous
  Country: US (occurrence: US)
  Receive Date: 20191112
  Receipt Date: 20191112
  Transmission Date: 20200122
  Serious: No
  Sender: FDA-Public Use
  Company Number: US-HORIZON-DUE-0583-2019

PATIENT
  Age: 58 Year
  Sex: Male

DRUGS (2)
  1. DUEXIS [Suspect]
     Active Substance: FAMOTIDINE\IBUPROFEN
     Indication: BACK INJURY
     Dosage: TWICE A DAY
     Dates: start: 201802
  2. LIBRAX [Concomitant]
     Active Substance: CHLORDIAZEPOXIDE HYDROCHLORIDE\CLIDINIUM BROMIDE

REACTIONS (4)
  - Insurance issue [Unknown]
  - Off label use [Unknown]
  - Pain in extremity [Unknown]
  - Therapy cessation [Unknown]

NARRATIVE: CASE EVENT DATE: 201909
